FAERS Safety Report 11913501 (Version 2)
Quarter: 2016Q1

REPORT INFORMATION
  Report Type: Spontaneous
  Country: JP (occurrence: JP)
  Receive Date: 20160113
  Receipt Date: 20160224
  Transmission Date: 20160526
  Serious: Yes (Other)
  Sender: FDA-Public Use
  Company Number: JP-PFIZER INC-2016007634

PATIENT
  Age: 70 Year
  Sex: Male

DRUGS (8)
  1. HALFDIGOXIN [Concomitant]
     Active Substance: DIGOXIN
     Dosage: 0.125 MG, 1X/DAY
     Dates: start: 2011
  2. BASEN [Concomitant]
     Active Substance: VOGLIBOSE
     Dosage: 0.3 MG, 3X/DAY
     Dates: start: 2011
  3. LASIX [Concomitant]
     Active Substance: FUROSEMIDE
     Dosage: 10 MG, 1X/DAY
     Dates: start: 2011
  4. MAINTATE [Concomitant]
     Active Substance: BISOPROLOL FUMARATE
     Dosage: 2.5 MG, 1X/DAY
     Dates: start: 2011
  5. SELARA [Suspect]
     Active Substance: EPLERENONE
     Dosage: 25 MG, 1X/DAY
     Route: 048
     Dates: start: 2011
  6. TANATRIL [Concomitant]
     Active Substance: IMIDAPRIL
     Dosage: 5 MG, 1X/DAY
     Dates: start: 2011
  7. XARELTO [Concomitant]
     Active Substance: RIVAROXABAN
     Dosage: 15 MG, 1X/DAY
     Dates: start: 20130925
  8. NESINA [Concomitant]
     Active Substance: ALOGLIPTIN BENZOATE
     Dosage: 25 MG, 1X/DAY

REACTIONS (2)
  - Cognitive disorder [Unknown]
  - Drug-induced liver injury [Recovering/Resolving]

NARRATIVE: CASE EVENT DATE: 20151218
